FAERS Safety Report 5035721-3 (Version None)
Quarter: 2006Q2

REPORT INFORMATION
  Report Type: 
  Country: None (occurrence: None)
  Receive Date: 20060627
  Receipt Date: 20060119
  Transmission Date: 20061013
  Serious: Yes (Other)
  Sender: FDA-Public Use
  Company Number: US-AVENTIS-200610702US

PATIENT
  Sex: Female
  Weight: 111.35 kg

DRUGS (16)
  1. LANTUS [Suspect]
     Indication: DIABETES MELLITUS NON-INSULIN-DEPENDENT
     Dates: start: 20060106
  2. LANTUS [Suspect]
     Dates: start: 20060118
  3. OPTICLIK (INSULIN INJECTION PEN) [Suspect]
     Indication: DIABETES MELLITUS NON-INSULIN-DEPENDENT
  4. AMARYL [Concomitant]
  5. LISINOPRIL [Concomitant]
     Indication: HYPERTENSION
  6. NEXIUM [Concomitant]
     Indication: GASTROOESOPHAGEAL REFLUX DISEASE
  7. CLONAZEPAM [Concomitant]
     Indication: RESTLESS LEGS SYNDROME
  8. CLONAZEPAM [Concomitant]
  9. KETOPROFEN [Concomitant]
     Indication: ARTHRITIS
  10. MIRAPEX [Concomitant]
     Indication: RESTLESS LEGS SYNDROME
  11. DOXEPIN [Concomitant]
  12. DOXEPIN [Concomitant]
     Indication: FIBROMYALGIA
  13. BUMEX [Concomitant]
     Indication: DIURETIC THERAPY
  14. SYNTHROID [Concomitant]
     Indication: HYPOTHYROIDISM
  15. METFORMIN [Concomitant]
     Indication: DIABETES MELLITUS NON-INSULIN-DEPENDENT
     Dosage: DOSE: 2 TABS IN AM, ONE AT NOON, AND 2 IN EVENING
  16. DARVOCET [Concomitant]
     Indication: PAIN

REACTIONS (8)
  - BLOOD GLUCOSE INCREASED [None]
  - DECREASED APPETITE [None]
  - GAIT DISTURBANCE [None]
  - INCORRECT DOSE ADMINISTERED [None]
  - LETHARGY [None]
  - LOSS OF CONSCIOUSNESS [None]
  - PHARMACEUTICAL PRODUCT COMPLAINT [None]
  - SOMNOLENCE [None]
